FAERS Safety Report 5319173-1 (Version None)
Quarter: 2007Q1

REPORT INFORMATION
  Report Type: 
  Country: None (occurrence: None)
  Receive Date: 20070202
  Receipt Date: 20060713
  Transmission Date: 20070707
  Serious: Yes (Life-Threatening, Hospitalization)
  Sender: FDA-Public Use
  Company Number: 254863

PATIENT
  Age: 46 Year
  Sex: Female

DRUGS (2)
  1. NOVOLOG [Suspect]
     Indication: DIABETES MELLITUS NON-INSULIN-DEPENDENT
     Dosage: SINGLE, SUBCUTANEOUS
     Route: 058
     Dates: start: 20060712, end: 20060712
  2. PHENERGAN [Suspect]
     Indication: VOMITING
     Dosage: SINGLE, INTRAMUSCULAR
     Route: 030
     Dates: start: 20060712, end: 20060712

REACTIONS (1)
  - ANAPHYLACTIC SHOCK [None]
